FAERS Safety Report 12689668 (Version 2)
Quarter: 2016Q4

REPORT INFORMATION
  Report Type: Spontaneous
  Country: IE (occurrence: IE)
  Receive Date: 20160826
  Receipt Date: 20161010
  Transmission Date: 20170207
  Serious: Yes (Death)
  Sender: FDA-Public Use
  Company Number: IE-PFIZER INC-2016403450

PATIENT
  Age: 47 Year
  Sex: Male

DRUGS (2)
  1. PINAMOX [Concomitant]
     Indication: TOOTH EXTRACTION
  2. SUTENT [Suspect]
     Active Substance: SUNITINIB MALATE
     Indication: METASTATIC RENAL CELL CARCINOMA
     Dosage: 50 MG, CYCLIC (ON 4/2 SCHEDULE)
     Dates: start: 20110301, end: 20110505

REACTIONS (3)
  - Stomatitis [Unknown]
  - Fatigue [Unknown]
  - Death [Fatal]
